FAERS Safety Report 11669639 (Version 3)
Quarter: 2016Q2

REPORT INFORMATION
  Report Type: Report from Study
  Country: JP (occurrence: JP)
  Receive Date: 20151027
  Receipt Date: 20160502
  Transmission Date: 20160815
  Serious: Yes (Hospitalization, Other)
  Sender: FDA-Public Use
  Company Number: PHHY2015JP129167

PATIENT
  Age: 68 Year
  Sex: Male
  Weight: 68 kg

DRUGS (45)
  1. NEOMALLERMIN-TR [Suspect]
     Active Substance: DEXCHLORPHENIRAMINE MALEATE
     Indication: PREMEDICATION
     Dosage: 6 MG, QD
     Route: 065
     Dates: start: 20150902, end: 20150902
  2. NEOMALLERMIN-TR [Suspect]
     Active Substance: DEXCHLORPHENIRAMINE MALEATE
     Dosage: 6 MG, QD
     Route: 065
     Dates: start: 20151020, end: 20151020
  3. NEOMALLERMIN-TR [Suspect]
     Active Substance: DEXCHLORPHENIRAMINE MALEATE
     Dosage: 6 MG, QD
     Route: 065
     Dates: start: 20151027, end: 20151027
  4. CALONAL [Concomitant]
     Active Substance: ACETAMINOPHEN
     Dosage: 500 MG, QD
     Route: 065
     Dates: start: 20150916, end: 20150916
  5. OFATUMUMAB [Suspect]
     Active Substance: OFATUMUMAB
     Dosage: 1000 MG, QD
     Route: 041
     Dates: start: 20150916, end: 20150916
  6. OFATUMUMAB [Suspect]
     Active Substance: OFATUMUMAB
     Dosage: 2000 MG, QD
     Route: 041
     Dates: start: 20151027, end: 20151027
  7. PREDONINE [Suspect]
     Active Substance: PREDNISOLONE\PREDNISOLONE ACETATE\PREDNISOLONE SODIUM SUCCINATE
     Indication: PREMEDICATION
     Dosage: 100 MG, QD
     Route: 065
     Dates: start: 20150902, end: 20150902
  8. CALONAL [Concomitant]
     Active Substance: ACETAMINOPHEN
     Indication: PYREXIA
     Dosage: 500 MG, QD
     Route: 065
     Dates: start: 20150903
  9. CALONAL [Concomitant]
     Active Substance: ACETAMINOPHEN
     Dosage: 500 MG, QD
     Route: 065
     Dates: start: 20151001, end: 20151001
  10. PARACITAMOL [Concomitant]
     Indication: PRODUCT USED FOR UNKNOWN INDICATION
     Route: 065
  11. OFATUMUMAB [Suspect]
     Active Substance: OFATUMUMAB
     Indication: CHRONIC LYMPHOCYTIC LEUKAEMIA
     Dosage: 300 MG, QD
     Route: 041
     Dates: start: 20150902, end: 20150902
  12. OFATUMUMAB [Suspect]
     Active Substance: OFATUMUMAB
     Dosage: 2000 MG, QD
     Route: 041
     Dates: start: 20151001, end: 20151001
  13. PREDONINE [Suspect]
     Active Substance: PREDNISOLONE\PREDNISOLONE ACETATE\PREDNISOLONE SODIUM SUCCINATE
     Dosage: 60 MG, QD
     Route: 065
     Dates: start: 20151001, end: 20151001
  14. CALONAL [Concomitant]
     Active Substance: ACETAMINOPHEN
     Dosage: 500 MG, QD
     Route: 065
     Dates: start: 20150924, end: 20150924
  15. CALONAL [Concomitant]
     Active Substance: ACETAMINOPHEN
     Dosage: 500 MG, QD
     Route: 065
     Dates: start: 20151009, end: 20151009
  16. CALONAL [Concomitant]
     Active Substance: ACETAMINOPHEN
     Dosage: 500 MG, UNK
     Route: 065
     Dates: start: 20151204, end: 20151204
  17. MAGLAX [Concomitant]
     Active Substance: MAGNESIUM OXIDE
     Indication: CONSTIPATION
     Dosage: 330 MG, TID
     Route: 065
     Dates: start: 20150831
  18. VALACICLOVIR HYDROCHLORIDE [Concomitant]
     Active Substance: VALACYCLOVIR HYDROCHLORIDE
     Indication: ANTIVIRAL PROPHYLAXIS
     Dosage: 500 MG, QOD
     Route: 065
     Dates: start: 20150728
  19. OFATUMUMAB [Suspect]
     Active Substance: OFATUMUMAB
     Dosage: 2000 MG, QD
     Route: 041
     Dates: start: 20151104, end: 20151104
  20. FLUDARA [Suspect]
     Active Substance: FLUDARABINE PHOSPHATE
     Indication: CHRONIC LYMPHOCYTIC LEUKAEMIA
     Dosage: UNK
     Route: 048
  21. NEOMALLERMIN-TR [Suspect]
     Active Substance: DEXCHLORPHENIRAMINE MALEATE
     Dosage: 6 MG, QD
     Route: 065
     Dates: start: 20151104, end: 20151104
  22. CALONAL [Concomitant]
     Active Substance: ACETAMINOPHEN
     Dosage: 500 MG, QD
     Route: 065
     Dates: start: 20151020, end: 20151020
  23. CALONAL [Concomitant]
     Active Substance: ACETAMINOPHEN
     Dosage: 500 MG, QD
     Route: 065
     Dates: start: 20151027, end: 20151027
  24. CONSTAN [Concomitant]
     Active Substance: ALPRAZOLAM
     Indication: INSOMNIA
     Dosage: 0.4 MG, QD
     Route: 065
     Dates: start: 20150715
  25. OFATUMUMAB [Suspect]
     Active Substance: OFATUMUMAB
     Dosage: 2000 MG, QD
     Route: 041
     Dates: start: 20151009, end: 20151009
  26. PREDONINE [Suspect]
     Active Substance: PREDNISOLONE\PREDNISOLONE ACETATE\PREDNISOLONE SODIUM SUCCINATE
     Dosage: 100 MG, QD
     Route: 065
     Dates: start: 20150924, end: 20150924
  27. PREDONINE [Suspect]
     Active Substance: PREDNISOLONE\PREDNISOLONE ACETATE\PREDNISOLONE SODIUM SUCCINATE
     Dosage: 40 MG, QD
     Route: 065
     Dates: start: 20151020, end: 20151020
  28. NEOMALLERMIN-TR [Suspect]
     Active Substance: DEXCHLORPHENIRAMINE MALEATE
     Dosage: 6 MG, QD
     Route: 065
     Dates: start: 20151204, end: 20151204
  29. CALONAL [Concomitant]
     Active Substance: ACETAMINOPHEN
     Dosage: 500 MG, QD
     Route: 065
     Dates: start: 20151104, end: 20151104
  30. RED BLOOD CELLS, CONCENTRATED [Concomitant]
     Active Substance: HUMAN RED BLOOD CELL
     Indication: ANAEMIA
     Dosage: UNK
     Route: 065
     Dates: start: 20150629
  31. GASCON [Concomitant]
     Active Substance: DIMETHICONE
     Indication: PRODUCT USED FOR UNKNOWN INDICATION
     Dosage: 40 MG, TID
     Route: 065
     Dates: start: 20150821
  32. CEREKINON [Concomitant]
     Active Substance: TRIMEBUTINE
     Indication: FUNCTIONAL GASTROINTESTINAL DISORDER
     Dosage: 100 MG, TID
     Route: 065
     Dates: start: 20150820
  33. NEXIUM [Concomitant]
     Active Substance: ESOMEPRAZOLE MAGNESIUM
     Indication: GASTROOESOPHAGEAL REFLUX DISEASE
     Dosage: 20 MG, QD
     Route: 065
     Dates: start: 20150703
  34. BAKTAR [Concomitant]
     Active Substance: SULFAMETHOXAZOLE\TRIMETHOPRIM
     Indication: ANTIFUNGAL PROPHYLAXIS
     Dosage: 1 DF, QOD
     Route: 048
     Dates: start: 20150720
  35. RITUXAN [Suspect]
     Active Substance: RITUXIMAB
     Indication: CHRONIC LYMPHOCYTIC LEUKAEMIA
     Dosage: UNK
     Route: 065
  36. PREDONINE [Suspect]
     Active Substance: PREDNISOLONE\PREDNISOLONE ACETATE\PREDNISOLONE SODIUM SUCCINATE
     Dosage: 20 MG, QD
     Route: 065
     Dates: start: 20151009, end: 20151009
  37. NEOMALLERMIN-TR [Suspect]
     Active Substance: DEXCHLORPHENIRAMINE MALEATE
     Dosage: 6 MG, QD
     Route: 065
     Dates: start: 20151001, end: 20151001
  38. OFATUMUMAB [Suspect]
     Active Substance: OFATUMUMAB
     Dosage: 2000 MG, QD
     Route: 041
     Dates: start: 20151204
  39. NEOMALLERMIN-TR [Suspect]
     Active Substance: DEXCHLORPHENIRAMINE MALEATE
     Dosage: 6 MG, QD
     Route: 065
     Dates: start: 20150916, end: 20150916
  40. OFATUMUMAB [Suspect]
     Active Substance: OFATUMUMAB
     Dosage: 2000 MG, QD
     Route: 041
     Dates: start: 20150924, end: 20150924
  41. OFATUMUMAB [Suspect]
     Active Substance: OFATUMUMAB
     Dosage: 2000 MG, QD
     Route: 041
     Dates: start: 20151020, end: 20151020
  42. PREDONINE [Suspect]
     Active Substance: PREDNISOLONE\PREDNISOLONE ACETATE\PREDNISOLONE SODIUM SUCCINATE
     Dosage: 100 MG, QD
     Route: 065
     Dates: start: 20150916, end: 20150916
  43. NEOMALLERMIN-TR [Suspect]
     Active Substance: DEXCHLORPHENIRAMINE MALEATE
     Dosage: 6 MG, QD
     Route: 065
     Dates: start: 20150924, end: 20150924
  44. NEOMALLERMIN-TR [Suspect]
     Active Substance: DEXCHLORPHENIRAMINE MALEATE
     Dosage: 6 MG, QD
     Route: 065
     Dates: start: 20151009, end: 20151009
  45. CALONAL [Concomitant]
     Active Substance: ACETAMINOPHEN
     Indication: PREMEDICATION
     Dosage: 500 MG, QD
     Route: 065
     Dates: start: 20150902, end: 20150902

REACTIONS (21)
  - Body temperature increased [Unknown]
  - Malignant neoplasm progression [Not Recovered/Not Resolved]
  - Hepatitis B [Unknown]
  - Back pain [Recovering/Resolving]
  - Blood lactate dehydrogenase increased [Unknown]
  - Aspartate aminotransferase increased [Unknown]
  - Blood pressure decreased [Unknown]
  - Renal disorder [Recovered/Resolved]
  - Heart rate increased [Unknown]
  - Spinal compression fracture [Recovering/Resolving]
  - Hyperkalaemia [Recovered/Resolved]
  - Hyperphosphataemia [Recovered/Resolved]
  - Hyperuricaemia [Recovered/Resolved]
  - Chronic lymphocytic leukaemia [Not Recovered/Not Resolved]
  - Thrombocytopenia [Recovered/Resolved]
  - Tumour lysis syndrome [Recovered/Resolved]
  - Chest pain [Recovered/Resolved]
  - Hypercalcaemia [Recovered/Resolved]
  - Pneumonia [Recovered/Resolved]
  - Abdominal pain [Recovered/Resolved]
  - Periodontitis [Recovered/Resolved]

NARRATIVE: CASE EVENT DATE: 20150903
